FAERS Safety Report 4585437-2 (Version None)
Quarter: 2005Q1

REPORT INFORMATION
  Report Type: 
  Country: None (occurrence: None)
  Receive Date: 20050215
  Receipt Date: 20041207
  Transmission Date: 20050727
  Serious: Yes (Congenital Anomaly)
  Sender: FDA-Public Use
  Company Number: 2004-12-0199

PATIENT
  Age: 1 Day
  Sex: 0
  Weight: 2.268 kg

DRUGS (6)
  1. DOXORUBICIN HCL [Suspect]
     Indication: BONE SARCOMA
     Dosage: 508 MG CUMUL.
     Dates: start: 20010807, end: 20020721
  2. CISPLATIN [Suspect]
     Indication: BONE SARCOMA
     Dosage: 508 MG CUMUL.
     Dates: start: 20010807, end: 20020721
  3. METHOTREXATE [Suspect]
     Indication: BONE SARCOMA
     Dosage: 146.4 G CUMUL
     Dates: start: 20010807, end: 20020721
  4. IFOSFAMIDE [Suspect]
     Indication: BONE SARCOMA
     Dosage: 24.8 G. CUMUL. INTRAVENOUS
     Route: 042
     Dates: start: 20010807, end: 20020721
  5. MARCUMAR TABLETS [Concomitant]
  6. HEPARIN [Concomitant]

REACTIONS (14)
  - BONE DEVELOPMENT ABNORMAL [None]
  - CAESAREAN SECTION [None]
  - CHROMOSOME ANALYSIS ABNORMAL [None]
  - CONGENITAL ABSENCE OF CRANIAL VAULT [None]
  - CONGENITAL EYELID MALFORMATION [None]
  - CONGENITAL HAND MALFORMATION [None]
  - CONGENITAL ORAL MALFORMATION [None]
  - DRUG EXPOSURE DURING PREGNANCY [None]
  - FACIAL DYSMORPHISM [None]
  - FOETAL GROWTH RETARDATION [None]
  - MACROCEPHALY [None]
  - NEONATAL DISORDER [None]
  - OSTEODYSTROPHY [None]
  - SMALL FOR DATES BABY [None]
